FAERS Safety Report 22126377 (Version 1)
Quarter: 2023Q1

REPORT INFORMATION
  Report Type: Spontaneous
  Country: US (occurrence: US)
  Receive Date: 20230322
  Receipt Date: 20230322
  Transmission Date: 20230417
  Serious: No
  Sender: FDA-Public Use
  Company Number: US-TEVA-2023-US-2863894

PATIENT
  Sex: Female

DRUGS (5)
  1. ALPRAZOLAM [Suspect]
     Active Substance: ALPRAZOLAM
     Indication: Product used for unknown indication
     Route: 065
  2. Accord bupropion [Concomitant]
     Indication: Product used for unknown indication
     Dosage: AT 6 AM EACH MORNING AND ABOUT AN HOUR AND A HALF TO 2 HOURS LATER
     Route: 065
  3. ZYRTEC [Concomitant]
     Active Substance: CETIRIZINE HYDROCHLORIDE
     Indication: Hypersensitivity
     Dosage: TOOK HALF
     Route: 065
  4. AMITRIPTYLINE [Concomitant]
     Active Substance: AMITRIPTYLINE
     Indication: Product used for unknown indication
     Route: 065
  5. METOPROLOL [Concomitant]
     Active Substance: METOPROLOL
     Indication: Cardiac disorder
     Route: 065

REACTIONS (8)
  - Food allergy [Not Recovered/Not Resolved]
  - Arthropod bite [Unknown]
  - Feeling abnormal [Unknown]
  - Fatigue [Unknown]
  - Chest pain [Unknown]
  - Tachycardia [Recovered/Resolved]
  - Exposure to allergen [Recovered/Resolved]
  - Adverse event [Recovering/Resolving]
